FAERS Safety Report 4299380-X (Version None)
Quarter: 2004Q1

REPORT INFORMATION
  Report Type: 
  Country: None (occurrence: None)
  Receive Date: 20040219
  Receipt Date: 20040107
  Transmission Date: 20041129
  Serious: No
  Sender: FDA-Public Use
  Company Number: US-GLAXOSMITHKLINE-A0491914A

PATIENT
  Age: 60 Year
  Sex: Male

DRUGS (9)
  1. AVODART [Suspect]
     Indication: BENIGN PROSTATIC HYPERPLASIA
     Dosage: .5MG PER DAY
     Route: 048
  2. LIPITOR [Concomitant]
  3. NIASPAN [Concomitant]
  4. ASPIRIN [Concomitant]
  5. VITAMIN E [Concomitant]
  6. VITAMIN C [Concomitant]
  7. VITAMIN B COMPLEX CAP [Concomitant]
  8. FISH OIL [Concomitant]
  9. GLUCOSAMINE CHONDROITIN [Concomitant]

REACTIONS (2)
  - ABDOMINAL PAIN LOWER [None]
  - PHARMACEUTICAL PRODUCT COMPLAINT [None]
